FAERS Safety Report 4874188-2 (Version None)
Quarter: 2006Q1

REPORT INFORMATION
  Report Type: 
  Country: None (occurrence: None)
  Receive Date: 20060106
  Receipt Date: 20050715
  Transmission Date: 20060701
  Serious: Yes (Hospitalization)
  Sender: FDA-Public Use
  Company Number: PHHO2005GB20302

PATIENT
  Age: 24 Hour

DRUGS (3)
  1. SYNTOCINON [Suspect]
     Route: 064
  2. PROSTINE [Concomitant]
     Route: 064
  3. PROSTAGLANDINS [Concomitant]
     Route: 064

REACTIONS (4)
  - APGAR SCORE LOW [None]
  - DRUG EXPOSURE DURING PREGNANCY [None]
  - FOETAL DISTRESS SYNDROME [None]
  - LIFE SUPPORT [None]
